FAERS Safety Report 16364808 (Version 3)
Quarter: 2019Q2

REPORT INFORMATION
  Report Type: Spontaneous
  Country: US (occurrence: US)
  Receive Date: 20190529
  Receipt Date: 20190605
  Transmission Date: 20190711
  Serious: Yes (Other)
  Sender: FDA-Public Use
  Company Number: US-CONCORDIA PHARMACEUTICALS INC.-GSH201905-001473

PATIENT
  Age: 17 Year
  Sex: Female

DRUGS (1)
  1. CLONIDINE TABLET [Suspect]
     Active Substance: CLONIDINE
     Dosage: 160 TABLET
     Route: 048

REACTIONS (10)
  - Mental status changes [Unknown]
  - Hypertension [Unknown]
  - Overdose [Unknown]
  - Troponin increased [Unknown]
  - Insomnia [Unknown]
  - Bradycardia [Unknown]
  - Ejection fraction decreased [Unknown]
  - Pulmonary oedema [Unknown]
  - Somnolence [Unknown]
  - Systolic dysfunction [Unknown]
